FAERS Safety Report 12237123 (Version 1)
Quarter: 2016Q2

REPORT INFORMATION
  Report Type: Spontaneous
  Country: US (occurrence: None)
  Receive Date: 20160404
  Receipt Date: 20160404
  Transmission Date: 20160815
  Serious: Yes (Hospitalization)
  Sender: FDA-Public Use
  Company Number: None

PATIENT
  Age: 58 Year
  Sex: Male
  Weight: 74.84 kg

DRUGS (6)
  1. CIPRO [Suspect]
     Active Substance: CIPROFLOXACIN HYDROCHLORIDE
     Indication: LOCALISED INFECTION
     Route: 048
  2. MULTI VITAMIN [Concomitant]
     Active Substance: VITAMINS
  3. C VITAMIN [Concomitant]
  4. FLECAINIDE [Concomitant]
     Active Substance: FLECAINIDE
  5. LYSINE [Concomitant]
     Active Substance: LYSINE
  6. VITAMIN E\VITAMINS [Concomitant]
     Active Substance: .ALPHA.-TOCOPHEROL\VITAMINS

REACTIONS (3)
  - Arthralgia [None]
  - Ligament rupture [None]
  - Musculoskeletal stiffness [None]

NARRATIVE: CASE EVENT DATE: 20151003
